FAERS Safety Report 19322818 (Version 1)
Quarter: 2021Q2

REPORT INFORMATION
  Report Type: Spontaneous
  Country: FI (occurrence: FI)
  Receive Date: 20210528
  Receipt Date: 20210528
  Transmission Date: 20210717
  Serious: Yes (Disabling)
  Sender: FDA-Public Use
  Company Number: FI-ORGANON-O2105FIN002145

PATIENT
  Age: 12 Year
  Sex: Male

DRUGS (3)
  1. AERIUS (DESLORATADINE) [Suspect]
     Active Substance: DESLORATADINE
     Indication: HYPERSENSITIVITY
     Dosage: 10,ML,DAILY
     Route: 048
  2. SERONIL [Concomitant]
     Active Substance: FLUOXETINE HYDROCHLORIDE
     Dosage: UNK
     Route: 048
  3. RISPERIDONE. [Concomitant]
     Active Substance: RISPERIDONE
     Dosage: UNK
     Route: 048

REACTIONS (3)
  - Aggression [Not Recovered/Not Resolved]
  - Headache [Not Recovered/Not Resolved]
  - Abnormal behaviour [Not Recovered/Not Resolved]
